FAERS Safety Report 5632513-9 (Version None)
Quarter: 2008Q1

REPORT INFORMATION
  Report Type: 
  Country: None (occurrence: None)
  Receive Date: 20080219
  Receipt Date: 20080208
  Transmission Date: 20080703
  Serious: Yes (Other)
  Sender: FDA-Public Use
  Company Number: CHPA2008US02602

PATIENT
  Age: 9 Year
  Sex: Male

DRUGS (2)
  1. TRIAMINIC THIN STRIPS-COUGH AND RUNNY NOSE (NCH)(DIPHENHYDRAMINE HYDRO [Suspect]
     Indication: PYREXIA
     Dosage: 12.5 MG, ONCE/SINGLE, ORAL
     Route: 048
     Dates: start: 20080208, end: 20080208
  2. ACETAMINOPHEN [Suspect]
     Dates: start: 20080208

REACTIONS (3)
  - ABNORMAL BEHAVIOUR [None]
  - CONFUSIONAL STATE [None]
  - SOMNOLENCE [None]
